FAERS Safety Report 9656741 (Version 2)
Quarter: 2013Q4

REPORT INFORMATION
  Report Type: Spontaneous
  Country: BR (occurrence: BR)
  Receive Date: 20131030
  Receipt Date: 20131030
  Transmission Date: 20140711
  Serious: Yes (Other)
  Sender: FDA-Public Use
  Company Number: BR-BIOMARINAP-BR-2013-101658

PATIENT
  Age: 8 Year
  Sex: Male
  Weight: 18 kg

DRUGS (4)
  1. NAGLAZYME [Suspect]
     Indication: MUCOPOLYSACCHARIDOSIS VI
     Dosage: 20 MG, QW
     Route: 041
     Dates: start: 20081114
  2. RETINIC [Concomitant]
     Indication: NEUROGENIC BLADDER
     Dosage: 2.5 ML, BID
  3. HYDROCORTISONE [Concomitant]
     Indication: PREMEDICATION
  4. POLARAMINE [Concomitant]
     Indication: PREMEDICATION

REACTIONS (1)
  - Haemorrhage [Recovered/Resolved]
